FAERS Safety Report 8044961-0 (Version None)
Quarter: 2012Q1

REPORT INFORMATION
  Report Type: 
  Country: None (occurrence: None)
  Receive Date: 20120113
  Receipt Date: 20120105
  Transmission Date: 20120608
  Serious: Yes (Other)
  Sender: FDA-Public Use
  Company Number: GB-JNJFOC-20120102301

PATIENT
  Age: 44 Year
  Sex: Male

DRUGS (10)
  1. ACETAMINOPHEN [Suspect]
     Indication: PAIN
     Route: 048
     Dates: start: 20110823
  2. BENZTROPINE MESYLATE [Concomitant]
     Indication: EXTRAPYRAMIDAL DISORDER
     Route: 048
     Dates: start: 20111206
  3. LAXIDO [Concomitant]
     Indication: CONSTIPATION
     Route: 048
     Dates: start: 20110426
  4. ACETAMINOPHEN [Suspect]
     Indication: PYREXIA
     Route: 048
     Dates: start: 20110823
  5. DEPAKOTE [Concomitant]
     Indication: MOOD SWINGS
     Route: 048
     Dates: start: 20111206
  6. LAMOTRIGINE [Concomitant]
     Indication: MOOD SWINGS
     Route: 048
     Dates: start: 20111206
  7. OXYTETRACYCLINE [Concomitant]
     Indication: ACNE
     Route: 048
  8. LORAZEPAM [Concomitant]
     Indication: AGITATION
     Route: 048
     Dates: start: 20111202
  9. CLOZAPINE [Suspect]
     Indication: BIPOLAR DISORDER
     Route: 048
     Dates: start: 20100514, end: 20111201
  10. DIAZEPAM [Concomitant]
     Indication: AGITATION
     Route: 048
     Dates: start: 20111104

REACTIONS (7)
  - RASH [None]
  - NEUTROPENIA [None]
  - VASCULITIS [None]
  - HYPOMANIA [None]
  - MENTAL DISORDER [None]
  - NEUTROPHIL COUNT DECREASED [None]
  - WHITE BLOOD CELL COUNT DECREASED [None]
